FAERS Safety Report 12348698 (Version 1)
Quarter: 2016Q2

REPORT INFORMATION
  Report Type: Spontaneous
  Country: US (occurrence: US)
  Receive Date: 20160509
  Receipt Date: 20160509
  Transmission Date: 20160815
  Serious: No
  Sender: FDA-Public Use
  Company Number: US-MEDA-2016040116

PATIENT
  Age: 64 Year
  Sex: Male
  Weight: 100 kg

DRUGS (3)
  1. GLIMEPIRIDE. [Concomitant]
     Active Substance: GLIMEPIRIDE
     Indication: DIABETES MELLITUS
  2. JANUVIA [Concomitant]
     Active Substance: SITAGLIPTIN PHOSPHATE
     Indication: DIABETES MELLITUS
  3. MUSE [Suspect]
     Active Substance: ALPROSTADIL
     Indication: ERECTILE DYSFUNCTION
     Route: 066
     Dates: start: 20160426

REACTIONS (3)
  - Expired product administered [Recovered/Resolved]
  - Penile pain [Recovered/Resolved]
  - Urethral haemorrhage [Recovered/Resolved]

NARRATIVE: CASE EVENT DATE: 20160426
